FAERS Safety Report 23166569 (Version 1)
Quarter: 2023Q4

REPORT INFORMATION
  Report Type: Spontaneous
  Country: US (occurrence: US)
  Receive Date: 20231109
  Receipt Date: 20231109
  Transmission Date: 20240109
  Serious: Yes (Hospitalization)
  Sender: FDA-Public Use
  Company Number: US-SA-SAC20231108000706

PATIENT
  Age: 54 Year
  Sex: Female

DRUGS (21)
  1. DUPIXENT [Suspect]
     Active Substance: DUPILUMAB
     Indication: Asthma
     Dosage: 300 MG, QOW
     Route: 058
     Dates: start: 20230513
  2. AMMONIUM LACTATE [Concomitant]
     Active Substance: AMMONIUM LACTATE
  3. ALBUTEROL SULFATE [Concomitant]
     Active Substance: ALBUTEROL SULFATE
  4. BENZTROPINE [Concomitant]
     Active Substance: BENZTROPINE
  5. CLONIDINE [Concomitant]
     Active Substance: CLONIDINE
  6. DICLOFENAC [Concomitant]
     Active Substance: DICLOFENAC
  7. DULERA [Concomitant]
     Active Substance: FORMOTEROL FUMARATE DIHYDRATE\MOMETASONE FUROATE
  8. FLUOXETINE [Concomitant]
     Active Substance: FLUOXETINE HYDROCHLORIDE
  9. IBUPROFEN [Concomitant]
     Active Substance: IBUPROFEN
  10. LIDOCAINE [Concomitant]
     Active Substance: LIDOCAINE
  11. LISINOPRIL [Concomitant]
     Active Substance: LISINOPRIL
  12. MONTELUKAST [Concomitant]
     Active Substance: MONTELUKAST SODIUM
  13. RISPERIDONE [Concomitant]
     Active Substance: RISPERIDONE
  14. SHINGRIX [Concomitant]
     Active Substance: RECOMBINANT VARICELLA ZOSTER VIRUS (VZV) GLYCOPROTEIN E
  15. VITAMIN D NOS [Concomitant]
     Active Substance: VITAMIN D NOS
  16. BUPROPION HYDROCHLORIDE XL [Concomitant]
     Active Substance: BUPROPION HYDROCHLORIDE
  17. OMEGA-3 FATTY ACIDS [Concomitant]
     Active Substance: OMEGA-3 FATTY ACIDS
  18. SALONPAS [FELBINAC;MENTHOL] [Concomitant]
  19. MONTELUKAST [Concomitant]
     Active Substance: MONTELUKAST SODIUM
  20. ALBUTEROL [Concomitant]
     Active Substance: ALBUTEROL
  21. BUPROPION HYDROCHLORIDE XL [Concomitant]
     Active Substance: BUPROPION HYDROCHLORIDE

REACTIONS (1)
  - Cerebral disorder [Unknown]

NARRATIVE: CASE EVENT DATE: 20230101
